FAERS Safety Report 25725562 (Version 1)
Quarter: 2025Q3

REPORT INFORMATION
  Report Type: Spontaneous
  Country: US (occurrence: US)
  Receive Date: 20250826
  Receipt Date: 20250826
  Transmission Date: 20251020
  Serious: Yes (Other)
  Sender: COOPERSURGICAL
  Company Number: US-COOPERSURGICAL, INC.-2025CPS006134

PATIENT
  Age: 26 Year
  Sex: Female
  Weight: 69.388 kg

DRUGS (1)
  1. PARAGARD T 380A [Suspect]
     Active Substance: COPPER
     Indication: Contraception
     Route: 015
     Dates: start: 20161108

REACTIONS (15)
  - Uterine leiomyoma [Unknown]
  - Device breakage [Recovered/Resolved]
  - Foreign body in urogenital tract [Recovered/Resolved]
  - Complication of device removal [Recovered/Resolved]
  - Emotional distress [Unknown]
  - Foreign body in reproductive tract [Recovered/Resolved]
  - Urinary tract infection [Unknown]
  - Abnormal uterine bleeding [Recovered/Resolved]
  - Dyspareunia [Unknown]
  - Pain [Recovered/Resolved]
  - Vaginal infection [Unknown]
  - Vulvovaginal mycotic infection [Unknown]
  - Muscle spasms [Unknown]
  - Abdominal pain [Unknown]
  - Bacterial vaginosis [Unknown]

NARRATIVE: CASE EVENT DATE: 20161101
